FAERS Safety Report 5203928-8 (Version None)
Quarter: 2006Q4

REPORT INFORMATION
  Report Type: 
  Country: None (occurrence: None)
  Receive Date: 20061016
  Receipt Date: 20060626
  Transmission Date: 20070319
  Serious: Yes (Other)
  Sender: FDA-Public Use
  Company Number: 2006081103

PATIENT

DRUGS (4)
  1. NEURONTIN [Suspect]
     Indication: DRUG USE FOR UNKNOWN INDICATION
  2. LYRICA [Suspect]
     Indication: DRUG USE FOR UNKNOWN INDICATION
  3. TRICOR [Suspect]
     Indication: DRUG USE FOR UNKNOWN INDICATION
  4. CYMBALTA [Suspect]
     Indication: DRUG USE FOR UNKNOWN INDICATION

REACTIONS (2)
  - PAIN [None]
  - RENAL FAILURE [None]
